FAERS Safety Report 7065735-3 (Version None)
Quarter: 2010Q4

REPORT INFORMATION
  Report Type: 
  Country: None (occurrence: None)
  Receive Date: 20101027
  Receipt Date: 20101015
  Transmission Date: 20110411
  Serious: Yes (Hospitalization, Other)
  Sender: FDA-Public Use
  Company Number: PHHY2010JP58764

PATIENT
  Sex: Female

DRUGS (9)
  1. DIOVAN [Suspect]
     Dosage: 80MG, DAILY
     Route: 048
     Dates: start: 20080111, end: 20090627
  2. FLUITRAN [Concomitant]
     Indication: HYPERTENSION
     Dosage: 2MG, UNK
     Route: 048
     Dates: start: 20080125, end: 20080823
  3. MANIDIPINE HYDROCHLORIDE [Concomitant]
     Indication: HYPERTENSION
     Dosage: 10MG, UNK
  4. MANIDIPINE HYDROCHLORIDE [Concomitant]
     Dosage: 20MG, UNK
     Route: 048
     Dates: end: 20090613
  5. OLMETEC [Concomitant]
     Indication: HYPERTENSION
     Dosage: 20MG, UNK
     Route: 048
     Dates: end: 20080110
  6. MAGMITT [Concomitant]
     Dosage: 990MG, UNK
     Route: 048
  7. MS ONSHIPPU [Concomitant]
  8. MS REISHIPPU [Concomitant]
  9. RETICOLAN [Concomitant]
     Dosage: 1500MG , UNK
     Route: 048

REACTIONS (2)
  - BLOOD PRESSURE DIASTOLIC DECREASED [None]
  - COLITIS ISCHAEMIC [None]
